FAERS Safety Report 12638389 (Version 1)
Quarter: 2016Q3

REPORT INFORMATION
  Report Type: Spontaneous
  Country: US (occurrence: US)
  Receive Date: 20160809
  Receipt Date: 20160809
  Transmission Date: 20161109
  Serious: No
  Sender: FDA-Public Use
  Company Number: US-SA-2016SA107974

PATIENT
  Age: 67 Year
  Sex: Male

DRUGS (3)
  1. PLAVIX [Suspect]
     Active Substance: CLOPIDOGREL BISULFATE
     Route: 065
  2. ALIROCUMAB PREFILLED PEN [Concomitant]
     Active Substance: ALIROCUMAB
     Dates: start: 20151205
  3. PRALUENT [Suspect]
     Active Substance: ALIROCUMAB
     Indication: LOW DENSITY LIPOPROTEIN INCREASED
     Route: 065
     Dates: start: 20151205

REACTIONS (3)
  - Injection site haemorrhage [Recovered/Resolved]
  - Injection site urticaria [Unknown]
  - Injection site discolouration [Not Recovered/Not Resolved]

NARRATIVE: CASE EVENT DATE: 20160603
